FAERS Safety Report 17008307 (Version 1)
Quarter: 2019Q4

REPORT INFORMATION
  Report Type: Report from Study
  Country: US (occurrence: US)
  Receive Date: 20191108
  Receipt Date: 20191108
  Transmission Date: 20200122
  Serious: Yes (Other)
  Sender: FDA-Public Use
  Company Number: US-AUROBINDO-AUR-APL-2019-072005

PATIENT
  Sex: Male

DRUGS (1)
  1. EPTIFIBATIDE INJECTION [Suspect]
     Active Substance: EPTIFIBATIDE
     Indication: ANTIPLATELET THERAPY
     Dosage: 2 MICROGRAM/KILOGRAM/MINUTE
     Route: 042

REACTIONS (2)
  - Haemarthrosis [Unknown]
  - Anaemia [Unknown]
